FAERS Safety Report 10149336 (Version 1)
Quarter: 2014Q2

REPORT INFORMATION
  Report Type: Report from Study
  Country: CA (occurrence: CA)
  Receive Date: 20140502
  Receipt Date: 20140502
  Transmission Date: 20141212
  Serious: Yes (Other)
  Sender: FDA-Public Use
  Company Number: CA-JNJFOC-20140420066

PATIENT
  Age: 20 Year
  Sex: Female
  Weight: 110 kg

DRUGS (2)
  1. REMICADE [Suspect]
     Indication: IRIDOCYCLITIS
     Route: 042
     Dates: start: 20130408
  2. METHOTREXATE [Concomitant]
     Route: 058

REACTIONS (3)
  - Arthritis [Unknown]
  - Arthralgia [Unknown]
  - Off label use [Unknown]
